FAERS Safety Report 8403054-0 (Version None)
Quarter: 2012Q2

REPORT INFORMATION
  Report Type: 
  Country: None (occurrence: None)
  Receive Date: 20120601
  Receipt Date: 20120521
  Transmission Date: 20120825
  Serious: Yes (Hospitalization, Other)
  Sender: FDA-Public Use
  Company Number: US-ELI_LILLY_AND_COMPANY-US201106000498

PATIENT
  Sex: Female
  Weight: 45.351 kg

DRUGS (13)
  1. FORTEO [Suspect]
     Dosage: 20 UG, QD
     Route: 058
  2. FORTEO [Suspect]
     Dosage: 20 UG, QD
  3. SYNTHROID [Concomitant]
  4. METOPROLOL TARTRATE [Concomitant]
  5. NORVASC [Concomitant]
  6. DONEPEZIL HCL [Concomitant]
  7. NAMENDA [Concomitant]
     Dosage: UNK
  8. SODIUM CHLORIDE [Concomitant]
     Dosage: 30 MG, UNK
  9. MIRTAZAPINE [Concomitant]
  10. FORTEO [Suspect]
     Indication: OSTEOPOROSIS
     Dosage: 20 UG, QD
     Route: 058
     Dates: start: 20101201, end: 20110517
  11. PAROXETINE HCL [Concomitant]
  12. CALCIUM WITH VITAMIN D             /00944201/ [Concomitant]
  13. MEMANTINE HCL [Concomitant]

REACTIONS (4)
  - DEHYDRATION [None]
  - MALAISE [None]
  - HIP FRACTURE [None]
  - FALL [None]
